FAERS Safety Report 9848802 (Version 1)
Quarter: 2014Q1

REPORT INFORMATION
  Report Type: Spontaneous
  Country: US (occurrence: None)
  Receive Date: 20140124
  Receipt Date: 20140124
  Transmission Date: 20141002
  Serious: Yes (Other)
  Sender: FDA-Public Use
  Company Number: None

PATIENT
  Age: 83 Year
  Sex: Female

DRUGS (1)
  1. ATORVASTATIN [Suspect]
     Indication: BLOOD CHOLESTEROL
     Dosage: 1 TAB
     Route: 048
     Dates: start: 20140114, end: 20140122

REACTIONS (4)
  - Paraesthesia oral [None]
  - Abdominal discomfort [None]
  - Throat irritation [None]
  - Glossodynia [None]
